FAERS Safety Report 5362007-X (Version None)
Quarter: 2007Q2

REPORT INFORMATION
  Report Type: 
  Country: None (occurrence: None)
  Receive Date: 20070619
  Receipt Date: 20070618
  Transmission Date: 20071010
  Serious: Yes (Hospitalization)
  Sender: FDA-Public Use
  Company Number: US-BRISTOL-MYERS SQUIBB COMPANY-13816707

PATIENT
  Age: 73 Year
  Sex: Female
  Weight: 56 kg

DRUGS (9)
  1. ERBITUX [Suspect]
     Indication: BREAST CANCER METASTATIC
     Route: 036
     Dates: start: 20070606, end: 20070606
  2. CARBOPLATIN [Suspect]
     Indication: BREAST CANCER METASTATIC
     Route: 042
     Dates: start: 20070606, end: 20070606
  3. IRINOTECAN HCL [Suspect]
     Indication: BREAST CANCER METASTATIC
     Route: 042
     Dates: start: 20070606, end: 20070606
  4. ZOMETA [Concomitant]
     Indication: METASTASES TO BONE
     Route: 042
     Dates: start: 20070516
  5. FENTANYL TRANSDERMAL SYSTEM [Concomitant]
     Indication: PAIN
     Dates: start: 20070104
  6. OXYIR [Concomitant]
     Indication: PAIN
     Dates: start: 20060823
  7. LOMOTIL [Concomitant]
     Indication: DIARRHOEA
     Dates: start: 20061221
  8. KYTRIL [Concomitant]
     Indication: NAUSEA
     Route: 048
     Dates: start: 20061221
  9. LEVSIN [Concomitant]
     Indication: ABDOMINAL PAIN
     Route: 060
     Dates: start: 20070430

REACTIONS (3)
  - DEHYDRATION [None]
  - DIARRHOEA [None]
  - HYPERBILIRUBINAEMIA [None]
